FAERS Safety Report 13462080 (Version 1)
Quarter: 2017Q2

REPORT INFORMATION
  Report Type: Spontaneous
  Country: US (occurrence: US)
  Receive Date: 20170420
  Receipt Date: 20170420
  Transmission Date: 20170830
  Serious: No
  Sender: FDA-Public Use
  Company Number: None

PATIENT
  Sex: Female
  Weight: 70.2 kg

DRUGS (1)
  1. ENBREL [Suspect]
     Active Substance: ETANERCEPT
     Indication: PSORIASIS
     Dosage: ?          OTHER FREQUENCY:TWICE A WEEK;?
     Route: 058

REACTIONS (3)
  - Helicobacter infection [None]
  - Decreased appetite [None]
  - Gastric disorder [None]
